FAERS Safety Report 19507525 (Version 1)
Quarter: 2021Q3

REPORT INFORMATION
  Report Type: Spontaneous
  Country: AT (occurrence: AT)
  Receive Date: 20210708
  Receipt Date: 20210708
  Transmission Date: 20211014
  Serious: Yes (Other)
  Sender: FDA-Public Use
  Company Number: AT-ASTRAZENECA-2021A578161

PATIENT
  Age: 69 Year
  Sex: Female

DRUGS (30)
  1. SERTRALINE [Suspect]
     Active Substance: SERTRALINE HYDROCHLORIDE
     Dosage: 100.0MG UNKNOWN
     Route: 065
     Dates: start: 20210513, end: 20210526
  2. SPRAVATO [Suspect]
     Active Substance: ESKETAMINE
     Dosage: 28.0MG UNKNOWN
     Route: 065
     Dates: start: 20210414, end: 20210414
  3. ATORVALAN [Concomitant]
     Active Substance: ATORVASTATIN CALCIUM
     Dosage: 20.0MG UNKNOWN
     Route: 065
     Dates: start: 20210401, end: 20210526
  4. SEROQUEL XR [Suspect]
     Active Substance: QUETIAPINE FUMARATE
     Dosage: 50.0MG UNKNOWN
     Route: 048
     Dates: start: 20210423, end: 20210510
  5. PREGABALINE [Suspect]
     Active Substance: PREGABALIN
     Dosage: 50.0MG UNKNOWN
     Route: 065
     Dates: start: 20210419, end: 20210422
  6. ZYPREXA [Suspect]
     Active Substance: OLANZAPINE
     Dosage: 7.5MG UNKNOWN
     Route: 065
     Dates: start: 20210514, end: 20210526
  7. SPRAVATO [Suspect]
     Active Substance: ESKETAMINE
     Dosage: 28.0MG UNKNOWN
     Route: 065
     Dates: start: 20210412, end: 20210412
  8. QUILONORM [Suspect]
     Active Substance: LITHIUM
     Dosage: 450.0MG UNKNOWN
     Route: 065
     Dates: start: 20210415, end: 20210526
  9. SEROQUEL XR [Suspect]
     Active Substance: QUETIAPINE FUMARATE
     Dosage: 150.0MG UNKNOWN
     Route: 048
     Dates: start: 20210416, end: 20210422
  10. SEROQUEL XR [Suspect]
     Active Substance: QUETIAPINE FUMARATE
     Dosage: 50.0MG UNKNOWN
     Route: 048
     Dates: start: 20210514, end: 20210526
  11. TRITTICO [Suspect]
     Active Substance: TRAZODONE HYDROCHLORIDE
     Dosage: 150.0MG UNKNOWN
     Route: 065
     Dates: start: 20210401, end: 20210427
  12. SPRAVATO [Suspect]
     Active Substance: ESKETAMINE
     Dosage: 56.0MG UNKNOWN
     Route: 065
     Dates: start: 20210427, end: 20210427
  13. SERTRALINE [Suspect]
     Active Substance: SERTRALINE HYDROCHLORIDE
     Dosage: 150.0MG UNKNOWN
     Route: 065
     Dates: start: 20210401, end: 20210401
  14. SERTRALINE [Suspect]
     Active Substance: SERTRALINE HYDROCHLORIDE
     Dosage: 200.0MG UNKNOWN
     Route: 065
     Dates: start: 20210402, end: 20210412
  15. SPRAVATO [Suspect]
     Active Substance: ESKETAMINE
     Dosage: 56.0MG UNKNOWN
     Route: 065
     Dates: start: 20210423, end: 20210423
  16. SPRAVATO [Suspect]
     Active Substance: ESKETAMINE
     Dosage: 56.0MG UNKNOWN
     Route: 065
     Dates: start: 20210420, end: 20210420
  17. ZOLDEM [Concomitant]
     Active Substance: ZOLPIDEM TARTRATE
     Dosage: 10.0MG UNKNOWN
     Route: 065
     Dates: start: 20210401, end: 20210526
  18. OLEOVIT D3 [Concomitant]
     Active Substance: CHOLECALCIFEROL
     Route: 065
     Dates: start: 20210401, end: 20210518
  19. SERTRALINE [Suspect]
     Active Substance: SERTRALINE HYDROCHLORIDE
     Dosage: 150.0MG UNKNOWN
     Route: 065
     Dates: start: 20210413, end: 20210512
  20. PREGABALINE [Suspect]
     Active Substance: PREGABALIN
     Dosage: 100.0MG UNKNOWN
     Route: 065
     Dates: start: 20210423, end: 20210503
  21. QUILONORM [Suspect]
     Active Substance: LITHIUM
     Dosage: 450.0MG UNKNOWN
     Route: 065
     Dates: start: 20210405, end: 20210407
  22. IVABRADINE [Concomitant]
     Active Substance: IVABRADINE
     Dosage: 10.0MG UNKNOWN
     Route: 065
     Dates: start: 20210401, end: 20210526
  23. SPRAVATO [Suspect]
     Active Substance: ESKETAMINE
     Dosage: 28.0MG UNKNOWN
     Route: 065
     Dates: start: 20210408, end: 20210408
  24. SEROQUEL [Suspect]
     Active Substance: QUETIAPINE FUMARATE
     Dosage: 150.0MG UNKNOWN
     Route: 048
     Dates: start: 20210405, end: 20210415
  25. TRITTICO [Suspect]
     Active Substance: TRAZODONE HYDROCHLORIDE
     Dosage: 100.0MG UNKNOWN
     Route: 065
     Dates: start: 20210428, end: 20210526
  26. ZYPREXA [Suspect]
     Active Substance: OLANZAPINE
     Dosage: 10.0MG UNKNOWN
     Route: 065
     Dates: start: 20210401, end: 20210513
  27. SPRAVATO [Suspect]
     Active Substance: ESKETAMINE
     Dosage: 56.0MG UNKNOWN
     Route: 065
     Dates: start: 20210429, end: 20210429
  28. SPRAVATO [Suspect]
     Active Substance: ESKETAMINE
     Dosage: 84.0MG UNKNOWN
     Route: 065
     Dates: start: 20210504, end: 20210504
  29. QUILONORM [Suspect]
     Active Substance: LITHIUM
     Dosage: 225.0MG UNKNOWN
     Route: 065
     Dates: start: 20210412, end: 20210414
  30. INHIXA [Concomitant]
     Active Substance: ENOXAPARIN SODIUM
     Dosage: 4000.0IU UNKNOWN
     Route: 065
     Dates: start: 20210401, end: 20210518

REACTIONS (1)
  - Oedema [Recovering/Resolving]

NARRATIVE: CASE EVENT DATE: 20210422
